FAERS Safety Report 4732801-4 (Version None)
Quarter: 2005Q3

REPORT INFORMATION
  Report Type: 
  Country: None (occurrence: None)
  Receive Date: 20050801
  Receipt Date: 20050801
  Transmission Date: 20060218
  Serious: Yes (Other)
  Sender: FDA-Public Use
  Company Number: None

PATIENT
  Age: 2 Year
  Sex: Male
  Weight: 14.5151 kg

DRUGS (1)
  1. TOPAMAX [Suspect]
     Indication: EPILEPSY
     Dosage: 200MG    2X DAILY   ORAL
     Route: 048
     Dates: start: 20030601, end: 20041231

REACTIONS (2)
  - CONVULSION [None]
  - MULTI-ORGAN DISORDER [None]
